FAERS Safety Report 8305669-7 (Version None)
Quarter: 2012Q2

REPORT INFORMATION
  Report Type: 
  Country: None (occurrence: None)
  Receive Date: 20120423
  Receipt Date: 20120411
  Transmission Date: 20120825
  Serious: Yes (Death, Hospitalization, Other)
  Sender: FDA-Public Use
  Company Number: DE-CELGENEUS-062-20785-12020563

PATIENT
  Age: 61 Year
  Sex: Male
  Weight: 79 kg

DRUGS (5)
  1. ASPIRIN [Concomitant]
     Indication: PROPHYLAXIS
     Dosage: 100 MILLIGRAM
     Route: 048
     Dates: start: 20110620, end: 20111110
  2. OPIPRAMOL [Concomitant]
     Route: 065
     Dates: end: 20111101
  3. PREDNISOLONE [Suspect]
     Indication: MULTIPLE MYELOMA
     Route: 065
     Dates: start: 20110901
  4. THALIDOMIDE [Suspect]
     Indication: MULTIPLE MYELOMA
     Dosage: 50 MILLIGRAM
     Route: 048
     Dates: start: 20110920, end: 20111107
  5. BENDAMUSTIN [Suspect]
     Indication: MULTIPLE MYELOMA
     Route: 065
     Dates: start: 20110901

REACTIONS (5)
  - RENAL FAILURE [None]
  - MULTIPLE MYELOMA [None]
  - TREMOR [None]
  - GENERAL PHYSICAL HEALTH DETERIORATION [None]
  - PARAESTHESIA [None]
